FAERS Safety Report 14280126 (Version 3)
Quarter: 2018Q4

REPORT INFORMATION
  Report Type: Spontaneous
  Country: ES (occurrence: ES)
  Receive Date: 20171213
  Receipt Date: 20181221
  Transmission Date: 20190204
  Serious: Yes (Life-Threatening, Hospitalization, Other)
  Sender: FDA-Public Use
  Company Number: ES-ACCORD-061820

PATIENT
  Age: 24 Year
  Sex: Female

DRUGS (4)
  1. QUETIAPINE. [Suspect]
     Active Substance: QUETIAPINE
     Indication: PERSONALITY DISORDER
  2. TOPIRAMATE. [Suspect]
     Active Substance: TOPIRAMATE
     Indication: PERSONALITY DISORDER
  3. CLORAZEPIC ACID [Suspect]
     Active Substance: CLORAZEPIC ACID
     Indication: PERSONALITY DISORDER
  4. DULOXETINE. [Suspect]
     Active Substance: DULOXETINE
     Indication: PERSONALITY DISORDER

REACTIONS (4)
  - Overdose [Unknown]
  - Off label use [Unknown]
  - Blood creatine phosphokinase increased [Unknown]
  - Coma blister [Unknown]
